FAERS Safety Report 18100325 (Version 2)
Quarter: 2020Q3

REPORT INFORMATION
  Report Type: Spontaneous
  Country: CN (occurrence: CN)
  Receive Date: 20200731
  Receipt Date: 20200807
  Transmission Date: 20201103
  Serious: Yes (Hospitalization, Other)
  Sender: FDA-Public Use
  Company Number: CN-SA-2020SA197533

PATIENT

DRUGS (3)
  1. INSULIN GLARGINE [Suspect]
     Active Substance: INSULIN GLARGINE
     Indication: DIABETES MELLITUS MANAGEMENT
     Dosage: UNK
  2. ALPHA LIPOIC ACID [Concomitant]
     Active Substance: .ALPHA.-LIPOIC ACID
     Indication: ANTIOXIDANT THERAPY
     Dosage: UNK
  3. INSULIN LISPRO [Suspect]
     Active Substance: INSULIN LISPRO
     Indication: DIABETES MELLITUS MANAGEMENT
     Dosage: UNK

REACTIONS (3)
  - Foetal hypokinesia [Unknown]
  - Exposure during pregnancy [Unknown]
  - Foetal death [Unknown]

NARRATIVE: CASE EVENT DATE: 20170508
